FAERS Safety Report 20118753 (Version 3)
Quarter: 2021Q4

REPORT INFORMATION
  Report Type: Spontaneous
  Country: AR (occurrence: AR)
  Receive Date: 20211126
  Receipt Date: 20211214
  Transmission Date: 20220303
  Serious: No
  Sender: FDA-Public Use
  Company Number: AR-PFIZER INC-202101604872

PATIENT
  Age: 49 Year
  Sex: Female

DRUGS (7)
  1. ENBREL [Suspect]
     Active Substance: ETANERCEPT
     Indication: Rheumatoid arthritis
     Dosage: 25 MG, EVERY 4 DAYS
     Route: 065
     Dates: start: 20161201
  2. ENBREL [Suspect]
     Active Substance: ETANERCEPT
     Dosage: 25 MG, EVERY 3 DAYS
     Route: 065
     Dates: start: 20211129
  3. METHOTREXATE SODIUM [Concomitant]
     Active Substance: METHOTREXATE SODIUM
     Dosage: UNK
     Dates: start: 2014
  4. ACIFOL [FOLIC ACID] [Concomitant]
     Dosage: UNK
     Dates: start: 2014
  5. CALCIMAX D3 [CALCIUM CITRATE;COLECALCIFEROL] [Concomitant]
     Dosage: UNK
     Dates: start: 2018
  6. SILIDRAL UNO [Concomitant]
     Dosage: UNK
     Dates: start: 2018
  7. STEROGYL [COLECALCIFEROL] [Concomitant]
     Dosage: UNK
     Dates: start: 2018

REACTIONS (9)
  - Off label use [Unknown]
  - Pain [Unknown]
  - Intentional product misuse [Unknown]
  - Spinal pain [Unknown]
  - Pain in extremity [Unknown]
  - Pain in extremity [Unknown]
  - Arthralgia [Unknown]
  - Arthralgia [Unknown]
  - Foot deformity [Unknown]

NARRATIVE: CASE EVENT DATE: 20161201
